FAERS Safety Report 6850458-3 (Version None)
Quarter: 2010Q3

REPORT INFORMATION
  Report Type: 
  Country: None (occurrence: None)
  Receive Date: 20100716
  Receipt Date: 20071229
  Transmission Date: 20110219
  Serious: No
  Sender: FDA-Public Use
  Company Number: US-PFIZER INC-2007086426

PATIENT
  Sex: Female
  Weight: 81.8 kg

DRUGS (8)
  1. CHANTIX [Suspect]
     Indication: SMOKING CESSATION THERAPY
     Dates: start: 20070101
  2. NEURONTIN [Concomitant]
  3. TRILEPTAL [Concomitant]
  4. SYNTHROID [Concomitant]
  5. LITHIUM [Concomitant]
  6. SEROQUEL [Concomitant]
  7. TRAZODONE HYDROCHLORIDE [Concomitant]
  8. PLAVIX [Concomitant]

REACTIONS (6)
  - ANXIETY [None]
  - APATHY [None]
  - FEELING ABNORMAL [None]
  - INSOMNIA [None]
  - SENSORY DISTURBANCE [None]
  - WITHDRAWAL SYNDROME [None]
